FAERS Safety Report 4456360-9 (Version None)
Quarter: 2004Q3

REPORT INFORMATION
  Report Type: 
  Country: None (occurrence: None)
  Receive Date: 20040917
  Receipt Date: 20040910
  Transmission Date: 20050211
  Serious: Yes (Other)
  Sender: FDA-Public Use
  Company Number: 2004232970US

PATIENT
  Sex: Female

DRUGS (2)
  1. BEXTRA [Suspect]
     Dates: start: 20030101
  2. MEDROL [Concomitant]

REACTIONS (3)
  - PRURITUS [None]
  - RASH PUSTULAR [None]
  - URTICARIA [None]
